FAERS Safety Report 9365846 (Version 1)
Quarter: 2013Q2

REPORT INFORMATION
  Report Type: Report from Study
  Country: US (occurrence: US)
  Receive Date: 20130625
  Receipt Date: 20130625
  Transmission Date: 20140414
  Serious: Yes (Hospitalization, Other)
  Sender: FDA-Public Use
  Company Number: PHEH2013US013430

PATIENT
  Sex: Female
  Weight: 40.82 kg

DRUGS (10)
  1. TOBI [Suspect]
     Dosage: INHALE 1 VIAL VIA NEBULISER TWICE A DAY EVERY OTHER MONTH
  2. ALBUTEROL NEB [Concomitant]
     Dosage: 0.5 %, UNK
  3. PULMOZYME SOL [Concomitant]
     Dosage: 1 MG/ML, UNK
  4. ADVAIR DISKUS [Concomitant]
     Dosage: UNK
  5. PANCREASE [Concomitant]
     Dosage: UNK
  6. PRILOSEC [Concomitant]
     Dosage: 20 MG, UNK
  7. ZOLOFT [Concomitant]
     Dosage: 50 MG, UNK
  8. ACTIGALL [Concomitant]
     Dosage: 300 MG, UNK
  9. MULTIVITAMIN [Concomitant]
     Dosage: UNK
  10. SINGULAR [Concomitant]
     Dosage: 10 MG, UNK

REACTIONS (1)
  - Cystic fibrosis [Unknown]
